FAERS Safety Report 20322828 (Version 2)
Quarter: 2022Q1

REPORT INFORMATION
  Report Type: Spontaneous
  Country: FR (occurrence: FR)
  Receive Date: 20220111
  Receipt Date: 20220127
  Transmission Date: 20220423
  Serious: Yes (Hospitalization, Other)
  Sender: FDA-Public Use
  Company Number: None

PATIENT
  Age: 18 Year
  Sex: Male

DRUGS (4)
  1. DIAZEPAM [Suspect]
     Active Substance: DIAZEPAM
     Dosage: UNSPECIFIED DOSE , THERAPY START DATE : ASKU , THERAPY END DATE : NASK
     Route: 048
  2. CLONAZEPAM [Suspect]
     Active Substance: CLONAZEPAM
     Dosage: UNSPECIFIED DOSE , THERAPY START DATE : ASKU , THERAPY END DATE : NASK
     Route: 048
  3. COCAINE [Suspect]
     Active Substance: COCAINE
     Dosage: UNSPECIFIED DOSE , THERAPY START DATE : ASKU , THERAPY END DATE : NASK
     Route: 065
  4. PREGABALIN [Concomitant]
     Active Substance: PREGABALIN
     Dosage: UNSPECIFIED DOSE , THERAPY START DATE : ASKU , THERAPY END DATE : NASK
     Route: 048

REACTIONS (3)
  - Coma [Recovered/Resolved]
  - Substance abuse [Unknown]
  - Intentional product misuse [Unknown]

NARRATIVE: CASE EVENT DATE: 20211108
